FAERS Safety Report 11702148 (Version 1)
Quarter: 2015Q4

REPORT INFORMATION
  Report Type: Spontaneous
  Country: FR (occurrence: FR)
  Receive Date: 20151105
  Receipt Date: 20151105
  Transmission Date: 20160304
  Serious: Yes (Hospitalization, Other)
  Sender: FDA-Public Use
  Company Number: FR-MYLANLABS-2015M1036526

PATIENT
  Age: 29 Year
  Sex: Male
  Weight: 87 kg

DRUGS (4)
  1. VOGALENE [Concomitant]
     Active Substance: METOPIMAZINE
     Dosage: UNK
     Dates: start: 20150608
  2. AERIUS [Concomitant]
     Active Substance: DESLORATADINE
     Dosage: UNK
  3. CALCITONIN SALMON. [Suspect]
     Active Substance: CALCITONIN SALMON
     Indication: COMPLEX REGIONAL PAIN SYNDROME
     Dosage: 50 IU, ONCE
     Route: 058
     Dates: start: 20150608, end: 20150608
  4. CALCITONIN SALMON. [Suspect]
     Active Substance: CALCITONIN SALMON
     Indication: OFF LABEL USE

REACTIONS (1)
  - Generalised tonic-clonic seizure [Recovered/Resolved]

NARRATIVE: CASE EVENT DATE: 20150608
